FAERS Safety Report 10891998 (Version 2)
Quarter: 2015Q2

REPORT INFORMATION
  Report Type: Spontaneous
  Country: DE (occurrence: DE)
  Receive Date: 20150306
  Receipt Date: 20150630
  Transmission Date: 20150821
  Serious: Yes (Other)
  Sender: FDA-Public Use
  Company Number: DE-JNJFOC-20150216043

PATIENT
  Age: 33 Year
  Sex: Female

DRUGS (1)
  1. XEPLION [Suspect]
     Active Substance: PALIPERIDONE PALMITATE
     Indication: PSYCHOTIC DISORDER
     Route: 030
     Dates: start: 20120806, end: 20150107

REACTIONS (2)
  - Adverse event [Unknown]
  - Application site abscess [Recovered/Resolved]

NARRATIVE: CASE EVENT DATE: 201407
